FAERS Safety Report 17016571 (Version 3)
Quarter: 2019Q4

REPORT INFORMATION
  Report Type: Spontaneous
  Country: US (occurrence: US)
  Receive Date: 20191111
  Receipt Date: 20191118
  Transmission Date: 20200122
  Serious: No
  Sender: FDA-Public Use
  Company Number: US-PFIZER INC-2019482682

PATIENT
  Age: 90 Year
  Sex: Female

DRUGS (2)
  1. CLONIDINE. [Concomitant]
     Active Substance: CLONIDINE
     Dosage: UNK
  2. ALPRAZOLAM. [Suspect]
     Active Substance: ALPRAZOLAM
     Indication: ANXIETY
     Dosage: UNK

REACTIONS (8)
  - Bone disorder [Unknown]
  - Dry mouth [Unknown]
  - Myalgia [Unknown]
  - Nerve injury [Unknown]
  - Hair growth abnormal [Unknown]
  - Post procedural complication [Unknown]
  - Abnormal behaviour [Unknown]
  - Electric injury [Unknown]
